FAERS Safety Report 17978677 (Version 1)
Quarter: 2020Q3

REPORT INFORMATION
  Report Type: Spontaneous
  Country: ES (occurrence: ES)
  Receive Date: 20200703
  Receipt Date: 20200703
  Transmission Date: 20201103
  Serious: Yes (Other)
  Sender: FDA-Public Use
  Company Number: ES-TEVA-2020-ES-1793675

PATIENT
  Age: 48 Year

DRUGS (7)
  1. MEROPENEM HOSPIRA [Suspect]
     Active Substance: MEROPENEM
     Indication: INTESTINAL PERFORATION
     Route: 065
     Dates: start: 20200521
  2. PIPERACILINA + TAZOBACTAM [Suspect]
     Active Substance: PIPERACILLIN SODIUM\TAZOBACTAM SODIUM
     Indication: INTESTINAL PERFORATION
     Route: 065
     Dates: start: 20200518, end: 20200521
  3. OXALIPLATINO (7351A) [Suspect]
     Active Substance: OXALIPLATIN
     Indication: ADENOCARCINOMA OF COLON
     Dosage: 1 DF
     Route: 065
     Dates: start: 20200508
  4. FOLINATO CALCIO (1587CO) [Suspect]
     Active Substance: LEUCOVORIN CALCIUM
     Indication: ADENOCARCINOMA OF COLON
     Dosage: 1 DF
     Route: 065
     Dates: start: 20200508
  5. FLUOROURACILO (272A) [Suspect]
     Active Substance: FLUOROURACIL
     Indication: ADENOCARCINOMA OF COLON
     Dosage: 1 DF
     Route: 065
     Dates: start: 20200508
  6. TEICOPLANINA (2474A) [Suspect]
     Active Substance: TEICOPLANIN
     Indication: INTESTINAL PERFORATION
     Route: 065
     Dates: start: 20200521
  7. CEFTRIAXONA LDP TORLAN 250 MG IV POLVO Y DISOLVENTE PARA SOLUCION INYE [Suspect]
     Active Substance: CEFTRIAXONE SODIUM
     Indication: INTESTINAL PERFORATION
     Route: 065
     Dates: start: 20200516, end: 20200518

REACTIONS (1)
  - Toxic skin eruption [Unknown]

NARRATIVE: CASE EVENT DATE: 202005
